FAERS Safety Report 18031531 (Version 2)
Quarter: 2020Q3

REPORT INFORMATION
  Report Type: Spontaneous
  Country: US (occurrence: US)
  Receive Date: 20200716
  Receipt Date: 20200921
  Transmission Date: 20201103
  Serious: No
  Sender: FDA-Public Use
  Company Number: US-PFIZER INC-2020271148

PATIENT
  Age: 59 Year
  Sex: Female

DRUGS (1)
  1. IBRANCE [Suspect]
     Active Substance: PALBOCICLIB
     Dosage: 100 MG (IBRANCE TAB 100MG)
     Dates: start: 20190816

REACTIONS (4)
  - Nausea [Unknown]
  - Product dose omission issue [Unknown]
  - Decreased appetite [Unknown]
  - Headache [Unknown]
